FAERS Safety Report 17571130 (Version 2)
Quarter: 2020Q1

REPORT INFORMATION
  Report Type: Spontaneous
  Country: US (occurrence: US)
  Receive Date: 20200323
  Receipt Date: 20200331
  Transmission Date: 20200409
  Serious: No
  Sender: FDA-Public Use
  Company Number: US-TORRENT-00010118

PATIENT
  Age: 23 Year
  Sex: Male
  Weight: 104 kg

DRUGS (1)
  1. SUBVENITE [Suspect]
     Active Substance: LAMOTRIGINE
     Indication: MAJOR DEPRESSION
     Dates: start: 20200210, end: 20200224

REACTIONS (2)
  - Rash [Recovered/Resolved]
  - Scratch [Recovered/Resolved]

NARRATIVE: CASE EVENT DATE: 202003
